FAERS Safety Report 22959078 (Version 3)
Quarter: 2025Q1

REPORT INFORMATION
  Report Type: Report from Study
  Country: CA (occurrence: CA)
  Receive Date: 20230919
  Receipt Date: 20250304
  Transmission Date: 20250409
  Serious: Yes (Other)
  Sender: CELLTRION
  Company Number: CA-CELLTRION INC.-2023CA007131

PATIENT

DRUGS (22)
  1. ADALIMUMAB-AATY [Suspect]
     Active Substance: ADALIMUMAB-AATY
     Indication: Rheumatoid arthritis
     Dosage: 40 MG, 1 EVERY 2 WEEKS/BEEN TAKING MEDICATION FOR APPROXIMATELY 2 MONTHS
     Route: 058
     Dates: start: 20230126
  2. ADALIMUMAB-AATY [Suspect]
     Active Substance: ADALIMUMAB-AATY
     Dosage: 40 MG, 1 EVERY 2 WEEKS
     Route: 058
     Dates: start: 20230405, end: 20240107
  3. METFORMIN [Concomitant]
     Active Substance: METFORMIN HYDROCHLORIDE
  4. METFORMIN [Concomitant]
     Active Substance: METFORMIN HYDROCHLORIDE
  5. CRESTOR [Concomitant]
     Active Substance: ROSUVASTATIN CALCIUM
  6. PREVACID [Concomitant]
     Active Substance: LANSOPRAZOLE
  7. PREVACID [Concomitant]
     Active Substance: LANSOPRAZOLE
  8. PREVACID [Concomitant]
     Active Substance: LANSOPRAZOLE
  9. DICLOFENAC [Concomitant]
     Active Substance: DICLOFENAC
  10. DICLOFENAC [Concomitant]
     Active Substance: DICLOFENAC
  11. DICLOFENAC [Concomitant]
     Active Substance: DICLOFENAC
  12. PANTOPRAZOLE [Concomitant]
     Active Substance: PANTOPRAZOLE
     Indication: Gastrooesophageal reflux disease
  13. PANTOPRAZOLE [Concomitant]
     Active Substance: PANTOPRAZOLE
     Indication: Gastrooesophageal reflux disease
  14. PANTOPRAZOLE [Concomitant]
     Active Substance: PANTOPRAZOLE
     Indication: Gastrooesophageal reflux disease
  15. INVOKANA [Concomitant]
     Active Substance: CANAGLIFLOZIN
  16. PANTOPRAZOLE SODIUM [Concomitant]
     Active Substance: PANTOPRAZOLE SODIUM
  17. CANAGLIFLOZIN [Concomitant]
     Active Substance: CANAGLIFLOZIN
  18. CANAGLIFLOZIN [Concomitant]
     Active Substance: CANAGLIFLOZIN
  19. PANTOPRAZOLE SODIUM [Concomitant]
     Active Substance: PANTOPRAZOLE SODIUM
  20. PANTOPRAZOLE SODIUM [Concomitant]
     Active Substance: PANTOPRAZOLE SODIUM
  21. ROSUVASTATIN CALCIUM [Concomitant]
     Active Substance: ROSUVASTATIN CALCIUM
  22. ROSUVASTATIN CALCIUM [Concomitant]
     Active Substance: ROSUVASTATIN CALCIUM

REACTIONS (6)
  - Condition aggravated [Recovering/Resolving]
  - Mobility decreased [Recovering/Resolving]
  - Loss of personal independence in daily activities [Recovering/Resolving]
  - Arthralgia [Recovering/Resolving]
  - Adverse reaction [Recovering/Resolving]
  - Drug ineffective [Recovering/Resolving]
